FAERS Safety Report 10449231 (Version 1)
Quarter: 2014Q3

REPORT INFORMATION
  Report Type: Spontaneous
  Country: PR (occurrence: None)
  Receive Date: 20140911
  Receipt Date: 20140911
  Transmission Date: 20150326
  Serious: Yes (Life-Threatening)
  Sender: FDA-Public Use
  Company Number: None

PATIENT
  Age: 38 Year
  Sex: Female

DRUGS (4)
  1. POLYMYXIN B [Suspect]
     Active Substance: POLYMYXIN B
     Indication: INFECTION
     Route: 042
     Dates: start: 20140819, end: 20140910
  2. ACETAMINOPHEN. [Concomitant]
     Active Substance: ACETAMINOPHEN
  3. TYGACIL [Concomitant]
     Active Substance: TIGECYCLINE
  4. VANCOMYCIN [Concomitant]
     Active Substance: VANCOMYCIN

REACTIONS (1)
  - Pigmentation disorder [None]

NARRATIVE: CASE EVENT DATE: 20140909
